FAERS Safety Report 6432863-2 (Version None)
Quarter: 2009Q4

REPORT INFORMATION
  Report Type: 
  Country: None (occurrence: None)
  Receive Date: 20091109
  Receipt Date: 20091102
  Transmission Date: 20100525
  Serious: Yes (Hospitalization)
  Sender: FDA-Public Use
  Company Number: B0602335A

PATIENT
  Sex: Male

DRUGS (2)
  1. AUGMENTIN '125' [Suspect]
     Indication: DRUG USE FOR UNKNOWN INDICATION
     Dosage: 2TAB PER DAY
     Route: 048
     Dates: start: 20090916, end: 20090921
  2. CIPROXIN [Concomitant]
     Dosage: 1000MG PER DAY
     Route: 048
     Dates: start: 20090921, end: 20090924

REACTIONS (2)
  - ANGIOEDEMA [None]
  - DERMATITIS [None]
